FAERS Safety Report 5129376-7 (Version None)
Quarter: 2006Q4

REPORT INFORMATION
  Report Type: 
  Country: None (occurrence: None)
  Receive Date: 20061012
  Receipt Date: 20060929
  Transmission Date: 20070319
  Serious: Yes (Life-Threatening, Hospitalization, Other)
  Sender: FDA-Public Use
  Company Number: 2006115589

PATIENT
  Age: 54 Year
  Sex: Female

DRUGS (15)
  1. ZYRTEC [Suspect]
     Indication: URTICARIA
     Dosage: ORAL
     Route: 048
     Dates: start: 20000815
  2. CLINDAMYCIN HYDROCHLORIDE [Suspect]
     Indication: PYREXIA
     Dates: start: 20001010, end: 20001012
  3. ATARAX [Suspect]
     Indication: URTICARIA
     Dosage: ORAL
     Route: 048
  4. CLARITHROMYCIN [Suspect]
     Indication: PYREXIA
     Dosage: ORAL
     Route: 048
     Dates: start: 20001005, end: 20001005
  5. NIPOLAZIN (MEQUITAZINE) [Concomitant]
  6. POLARAMINE [Concomitant]
  7. DAREN (CEFAZOLIN SODIUM, CEFAZOLINE BENZATHINE) [Concomitant]
  8. CELTECT (OXATOMIDE) [Concomitant]
  9. MEFENAMIC ACID [Concomitant]
  10. MARZULENE S (LEVOGLUTAMIDE, SODIUM GUALENATE) [Concomitant]
  11. FOSFOMYCIN (FOSFOMYCIN) [Concomitant]
  12. AMPICILLIN [Concomitant]
  13. DICLOFENAC SODIUM [Concomitant]
  14. ATENOLOL [Concomitant]
  15. ISOSORBIDE DINITRATE [Concomitant]

REACTIONS (10)
  - BLOOD PRESSURE DECREASED [None]
  - GASTRIC ULCER HAEMORRHAGE [None]
  - HAEMATOCRIT DECREASED [None]
  - HAEMOGLOBIN DECREASED [None]
  - LYMPHOCYTE STIMULATION TEST POSITIVE [None]
  - PLASMAPHERESIS [None]
  - PLATELET COUNT DECREASED [None]
  - PSEUDOMONAL SEPSIS [None]
  - SKIN TEST POSITIVE [None]
  - TOXIC EPIDERMAL NECROLYSIS [None]
